FAERS Safety Report 4719211-0 (Version None)
Quarter: 2005Q3

REPORT INFORMATION
  Report Type: 
  Country: None (occurrence: None)
  Receive Date: 20050720
  Receipt Date: 20050704
  Transmission Date: 20060218
  Serious: Yes (Death)
  Sender: FDA-Public Use
  Company Number: 215828

PATIENT
  Age: 74 Year
  Sex: Female
  Weight: 56 kg

DRUGS (13)
  1. RITUXIMAB  (CONC. SOLUTION FOR INFUSION) [Suspect]
     Indication: CHRONIC LYMPHOCYTIC LEUKAEMIA
     Dosage: SEE IMAGE
     Route: 042
     Dates: start: 20050125, end: 20050622
  2. FLUDARABINE PHOSPHATE [Suspect]
     Indication: CHRONIC LYMPHOCYTIC LEUKAEMIA
     Dosage: 25MG/M2 Q4W INTRAVENOUS
     Route: 042
     Dates: start: 20050126, end: 20050624
  3. CYCLOPHOSPHAMIDE [Suspect]
     Indication: CHRONIC LYMPHOCYTIC LEUKAEMIA
     Dosage: 250MG/M2 Q4W INTRAVENOUS
     Route: 042
     Dates: start: 20050126, end: 20050624
  4. CO-TRIMAZOLE (TRIMETHORPIM, SULFAMETHOXAZOLE) [Concomitant]
  5. ACYCLOVIR [Concomitant]
  6. CEFTAZIDIM (CEFTAZIDIME) [Concomitant]
  7. ACETAMINOPHEN [Concomitant]
  8. MULTIPLE VITAMIN (MULTIVITAMINS NOS) [Concomitant]
  9. HEMISUCCINATE D'HYDROCORTISONE (HYDROCORTISONE HEMISUCCINATE) [Concomitant]
  10. METHYLPREDNISOLONE [Concomitant]
  11. METAMIZOLE (DIPYRONE) [Concomitant]
  12. COLISTINE (COLISTIN SULFATE) [Concomitant]
  13. METHYLENE BLUE (METHYLENE BLUE) [Concomitant]

REACTIONS (14)
  - ASTHENIA [None]
  - CARDIAC ARREST [None]
  - DRUG HYPERSENSITIVITY [None]
  - DYSPNOEA EXERTIONAL [None]
  - ESCHERICHIA INFECTION [None]
  - HEPATIC ENCEPHALOPATHY [None]
  - HEPATITIS [None]
  - ORAL CANDIDIASIS [None]
  - PANCYTOPENIA [None]
  - PERIORBITAL OEDEMA [None]
  - PNEUMONITIS [None]
  - RASH GENERALISED [None]
  - SOMNOLENCE [None]
  - WEIGHT DECREASED [None]
